FAERS Safety Report 6355595-8 (Version None)
Quarter: 2009Q3

REPORT INFORMATION
  Report Type: 
  Country: None (occurrence: None)
  Receive Date: 20090910
  Receipt Date: 20090825
  Transmission Date: 20100115
  Serious: Yes (Hospitalization)
  Sender: FDA-Public Use
  Company Number: 2008AL07564

PATIENT
  Age: 57 Year
  Sex: Male

DRUGS (19)
  1. DIGOXIN [Suspect]
     Dosage: 0.125MG, DAILY, PO
     Route: 048
  2. SPIRONOLACTONE [Concomitant]
  3. BENTYL [Concomitant]
  4. ATENOLOL [Concomitant]
  5. COUMADIN [Concomitant]
  6. FOLIC ACID [Concomitant]
  7. PROTONIX [Concomitant]
  8. MULTI-VITAMIN [Concomitant]
  9. LASIX [Concomitant]
  10. TENORMIN [Concomitant]
  11. DICYCLOMINE [Concomitant]
  12. ALDACTONE [Concomitant]
  13. FLOMAX [Concomitant]
  14. CORDARONE [Concomitant]
  15. SIMVASTATIN [Concomitant]
  16. TYLENOL (CAPLET) [Concomitant]
  17. RESTORIL [Concomitant]
  18. ASCORBIC ACID [Concomitant]
  19. XANAX [Concomitant]

REACTIONS (19)
  - ANAEMIA [None]
  - AORTIC ANEURYSM [None]
  - AORTIC VALVE INCOMPETENCE [None]
  - ATRIAL FIBRILLATION [None]
  - ATRIAL FLUTTER [None]
  - CARDIAC FAILURE [None]
  - CARDIOMEGALY [None]
  - CARPAL TUNNEL SYNDROME [None]
  - DYSLIPIDAEMIA [None]
  - DYSPNOEA [None]
  - HYPERTENSION [None]
  - IRRITABLE BOWEL SYNDROME [None]
  - MITRAL VALVE INCOMPETENCE [None]
  - NIGHT SWEATS [None]
  - OEDEMA PERIPHERAL [None]
  - PALPITATIONS [None]
  - PERICARDIAL EFFUSION [None]
  - SUPRAVENTRICULAR TACHYARRHYTHMIA [None]
  - TACHYCARDIA [None]
